APPROVED DRUG PRODUCT: EURAX
Active Ingredient: CROTAMITON
Strength: 10%
Dosage Form/Route: LOTION;TOPICAL
Application: N009112 | Product #003 | TE Code: AT
Applicant: JOURNEY MEDICAL CORP
Approved: Approved Prior to Jan 1, 1982 | RLD: Yes | RS: Yes | Type: RX